FAERS Safety Report 19774527 (Version 1)
Quarter: 2021Q3

REPORT INFORMATION
  Report Type: Spontaneous
  Country: US (occurrence: US)
  Receive Date: 20210901
  Receipt Date: 20210901
  Transmission Date: 20211014
  Serious: No
  Sender: FDA-Public Use
  Company Number: US-THERAPEUTICSMD-2021TMD01856

PATIENT
  Sex: Female
  Weight: 63.49 kg

DRUGS (2)
  1. ANNOVERA [Suspect]
     Active Substance: ETHINYL ESTRADIOL\SEGESTERONE ACETATE
     Indication: CONTRACEPTION
     Dosage: 1 RING, INSERTED ON WEDNESDAY FOR 21 DAYS IN AND 7 DAYS OUT
     Route: 067
     Dates: start: 202105
  2. VYVANSE [Concomitant]
     Active Substance: LISDEXAMFETAMINE DIMESYLATE
     Dosage: 30 MG, 1X/DAY EVERY MORNING

REACTIONS (7)
  - Incorrect product administration duration [Recovered/Resolved]
  - Middle insomnia [Recovered/Resolved]
  - Nausea [Recovered/Resolved]
  - Breast tenderness [Recovering/Resolving]
  - Breast enlargement [Unknown]
  - Vaginal haemorrhage [Recovered/Resolved]
  - Breast pain [Recovering/Resolving]

NARRATIVE: CASE EVENT DATE: 2021
